FAERS Safety Report 17552797 (Version 1)
Quarter: 2020Q1

REPORT INFORMATION
  Report Type: Spontaneous
  Country: FR (occurrence: FR)
  Receive Date: 20200318
  Receipt Date: 20200318
  Transmission Date: 20200409
  Serious: Yes (Other)
  Sender: FDA-Public Use
  Company Number: FR-ACCORD-176142

PATIENT
  Age: 56 Year
  Sex: Male
  Weight: 99 kg

DRUGS (22)
  1. ATORVASTATIN/ATORVASTATIN CALCIUM [Suspect]
     Active Substance: ATORVASTATIN CALCIUM
     Indication: HYPERCHOLESTEROLAEMIA
     Route: 048
     Dates: start: 20191007, end: 20200208
  2. SPIRONOLACTONE. [Suspect]
     Active Substance: SPIRONOLACTONE
     Indication: HYPERTENSION
     Route: 048
     Dates: start: 20191007, end: 20200207
  3. LOVENOX [Suspect]
     Active Substance: ENOXAPARIN SODIUM
     Indication: THROMBOSIS PROPHYLAXIS
     Dosage: STRENGTH: 4000 UI ANTI-XA/0.4 ML
     Route: 058
     Dates: start: 20200204, end: 20200207
  4. UROREC [Suspect]
     Active Substance: SILODOSIN
     Indication: BENIGN PROSTATIC HYPERPLASIA
     Dosage: STRENGTH:  8 MG
     Route: 048
     Dates: start: 20151022, end: 20200207
  5. WELLVONE [Suspect]
     Active Substance: ATOVAQUONE
     Indication: PRODUCT USED FOR UNKNOWN INDICATION
     Dosage: STRENGTH:  750 MG/5 ML
     Route: 048
     Dates: start: 20140820, end: 20200209
  6. ASPEGIC [ACETYLSALICYLATE LYSINE] [Suspect]
     Active Substance: ASPIRIN DL-LYSINE
     Indication: PRODUCT USED FOR UNKNOWN INDICATION
     Route: 048
     Dates: start: 20181018, end: 20200207
  7. VENLAFAXINE/VENLAFAXINE HYDROCHLORIDE [Suspect]
     Active Substance: VENLAFAXINE HYDROCHLORIDE
     Indication: ANXIETY
     Route: 048
     Dates: start: 20181018, end: 20200207
  8. PANTOPRAZOLE [Concomitant]
     Active Substance: PANTOPRAZOLE
  9. PREDNISONE. [Suspect]
     Active Substance: PREDNISONE
     Indication: TRANSPLANT REJECTION
     Route: 048
     Dates: end: 20200207
  10. TRAMADOL. [Concomitant]
     Active Substance: TRAMADOL
  11. ALPRAZOLAM. [Suspect]
     Active Substance: ALPRAZOLAM
     Indication: ANXIETY
     Route: 048
     Dates: start: 20151022, end: 20200207
  12. AMOXICILLIN. [Suspect]
     Active Substance: AMOXICILLIN
     Indication: PRODUCT USED FOR UNKNOWN INDICATION
     Route: 048
     Dates: start: 20200203, end: 20200207
  13. BISOPROLOL [Suspect]
     Active Substance: BISOPROLOL
     Indication: HYPERTENSION
     Route: 048
     Dates: start: 20191007, end: 20200207
  14. IMATINIB/IMATINIB MESILATE [Suspect]
     Active Substance: IMATINIB
     Indication: CHRONIC MYELOID LEUKAEMIA
     Route: 048
     Dates: start: 20191007, end: 20200207
  15. INSULIN [Concomitant]
     Active Substance: INSULIN NOS
  16. OXYCODONE [Suspect]
     Active Substance: OXYCODONE
     Indication: PAIN
     Route: 048
     Dates: start: 20160121, end: 20200207
  17. PARACETAMOL [Suspect]
     Active Substance: ACETAMINOPHEN
     Indication: PAIN
     Dates: start: 20200205, end: 20200207
  18. METFORMINE ARROW [Suspect]
     Active Substance: METFORMIN HYDROCHLORIDE
     Indication: DIABETES MELLITUS
     Dosage: STRENGTH: 500 MG
     Route: 048
     Dates: start: 20190424, end: 20200206
  19. HYDROCORTISONE. [Concomitant]
     Active Substance: HYDROCORTISONE
  20. OXYNORMORO [Suspect]
     Active Substance: OXYCODONE HYDROCHLORIDE
     Indication: PAIN
     Dosage: STRENGTH: 5 MG
     Route: 048
     Dates: start: 20151022, end: 20200207
  21. TEMESTA  [LORAZEPAM] [Suspect]
     Active Substance: LORAZEPAM
     Indication: ANXIETY
     Dosage: STRENGTH: 1 MG, SCORED TABLET
     Route: 048
     Dates: start: 20191007, end: 20200207
  22. VALACICLOVIR [Suspect]
     Active Substance: VALACYCLOVIR HYDROCHLORIDE
     Indication: VIRAL INFECTION
     Route: 048
     Dates: start: 20200204, end: 20200207

REACTIONS (1)
  - Acidosis [Recovered/Resolved]

NARRATIVE: CASE EVENT DATE: 20200206
